FAERS Safety Report 9222612 (Version 2)
Quarter: 2013Q2

REPORT INFORMATION
  Report Type: Spontaneous
  Country: ES (occurrence: ES)
  Receive Date: 20130410
  Receipt Date: 20130415
  Transmission Date: 20140414
  Serious: Yes (Hospitalization)
  Sender: FDA-Public Use
  Company Number: PHHY2013ES033871

PATIENT
  Age: 47 Year
  Sex: 0

DRUGS (1)
  1. OLANZAPINE [Suspect]
     Indication: SCHIZOPHRENIA, PARANOID TYPE
     Dosage: 10 MG, PER DAY

REACTIONS (3)
  - Hepatotoxicity [Unknown]
  - Hepatitis cholestatic [Recovered/Resolved]
  - Hepatocellular injury [Recovered/Resolved]
